FAERS Safety Report 6735113-2 (Version None)
Quarter: 2010Q2

REPORT INFORMATION
  Report Type: 
  Country: None (occurrence: None)
  Receive Date: 20100521
  Receipt Date: 20100511
  Transmission Date: 20101027
  Serious: Yes (Hospitalization)
  Sender: FDA-Public Use
  Company Number: US-PFIZER INC-2010047277

PATIENT
  Sex: Male
  Weight: 88.4 kg

DRUGS (18)
  1. BLINDED *NO SUBJECT DRUG [Suspect]
     Indication: CARDIAC FAILURE
     Dosage: UNK
     Route: 048
     Dates: start: 20090507, end: 20100413
  2. BLINDED *PLACEBO [Suspect]
     Indication: CARDIAC FAILURE
     Dosage: UNK
     Route: 048
     Dates: start: 20090507, end: 20100413
  3. BLINDED EPLERENONE [Suspect]
     Indication: CARDIAC FAILURE
     Dosage: UNK
     Route: 048
     Dates: start: 20090507, end: 20100413
  4. SINEMET [Concomitant]
     Dosage: 150/600 MG TID
     Route: 048
     Dates: start: 20080310
  5. PRILOSEC [Concomitant]
     Dosage: 20 MG, AS NEEDED
     Route: 048
  6. METOPROLOL [Concomitant]
     Dosage: 50 MG, 2X/DAY
     Route: 048
     Dates: start: 20060101
  7. PRINIVIL [Concomitant]
     Dosage: 5 MG, 1X/DAY
     Route: 048
     Dates: start: 20070101
  8. SENNA [Concomitant]
     Dosage: 17.2 MG, 2X/DAY
     Route: 048
     Dates: start: 20080310
  9. FUROSEMIDE [Concomitant]
     Dosage: 40 MG, 1X/DAY
     Route: 048
     Dates: start: 20040101
  10. PLAVIX [Concomitant]
     Dosage: 75 MG, 1X/DAY
     Route: 048
     Dates: start: 20080301
  11. PROSCAR [Concomitant]
     Dosage: 5 MG, 1X/DAY
     Route: 048
     Dates: start: 20080401
  12. POTASSIUM CHLORIDE [Concomitant]
     Dosage: 10 MEQ, 1X/DAY
     Route: 048
     Dates: start: 20080401
  13. ACETYLSALICYLIC ACID [Concomitant]
     Dosage: 325 MG, 1X/DAY
     Route: 048
     Dates: start: 19990101
  14. ZETIA [Concomitant]
     Dosage: 10 MG, 1X/DAY
     Route: 048
     Dates: start: 20060101
  15. UROXATRAL [Concomitant]
     Dosage: 10 MG, 1X/DAY
     Route: 048
     Dates: start: 20070101
  16. NITROSTAT [Concomitant]
     Dosage: 0.4 MG, AS NEEDED
     Route: 048
  17. AMIODARONE [Concomitant]
     Dosage: 200 MG, 1X/DAY
     Route: 048
     Dates: start: 20080101
  18. AMIODARONE [Concomitant]
     Dosage: 200 MG, 1/2 TABLET ONCE DAILY
     Route: 048
     Dates: start: 20091215

REACTIONS (1)
  - RENAL FAILURE ACUTE [None]
